FAERS Safety Report 8168892-0 (Version None)
Quarter: 2012Q1

REPORT INFORMATION
  Report Type: 
  Country: None (occurrence: None)
  Receive Date: 20120222
  Receipt Date: 20120206
  Transmission Date: 20120608
  Serious: Yes (Hospitalization, Disabling)
  Sender: FDA-Public Use
  Company Number: 2012-0696

PATIENT
  Age: 67 Year
  Sex: Female

DRUGS (1)
  1. SOMATULINE DEPOT [Suspect]
     Indication: PANCREATIC NEUROENDOCRINE TUMOUR
     Dosage: 120 MG (120 MG, 1 IN 15 D), SUBCUTANEOUS
     Route: 058
     Dates: start: 20111003, end: 20111101

REACTIONS (5)
  - SPEECH DISORDER [None]
  - INAPPROPRIATE SCHEDULE OF DRUG ADMINISTRATION [None]
  - DISORIENTATION [None]
  - AGGRESSION [None]
  - ABNORMAL BEHAVIOUR [None]
